FAERS Safety Report 8248394-3 (Version None)
Quarter: 2012Q1

REPORT INFORMATION
  Report Type: 
  Country: None (occurrence: None)
  Receive Date: 20120330
  Receipt Date: 20120320
  Transmission Date: 20120608
  Serious: Yes (Hospitalization)
  Sender: FDA-Public Use
  Company Number: NL-ABBOTT-12P-114-0917179-04

PATIENT
  Sex: Female

DRUGS (13)
  1. HYDROCOBAMINE [Concomitant]
     Indication: VITAMIN SUPPLEMENTATION
     Dosage: 500 MCG/ML, 2 ML ONCE A MONTH
     Dates: start: 20061102
  2. ACETAMINOPHEN [Concomitant]
     Indication: ABDOMINAL PAIN
     Dates: start: 20090310
  3. SOLUTIONS FOR PARENTERAL NUTRITION [Concomitant]
     Indication: CROHN'S DISEASE
  4. HUMIRA [Suspect]
     Indication: CROHN'S DISEASE
     Dosage: BASELINE
     Route: 058
     Dates: start: 20080930, end: 20080930
  5. AZATHIOPRINE [Concomitant]
     Indication: CROHN'S DISEASE
     Dates: start: 20090112
  6. HUMIRA [Suspect]
     Dosage: WEEK 2
     Route: 058
  7. CALCIUM CARBONATE [Concomitant]
     Indication: OSTEOPOROSIS
     Dosage: 500 MG/ 400IE ONCE DAILY
     Dates: start: 20061102
  8. QUESTRAN [Concomitant]
     Indication: DIARRHOEA
     Dates: start: 20081230
  9. PREDNISONE TAB [Concomitant]
     Indication: CROHN'S DISEASE
     Dosage: 40 MG DAILY AND TAPERING
     Dates: start: 20090226
  10. VITAMIN D [Concomitant]
     Indication: OSTEOPOROSIS
     Dosage: DRINK
  11. HUMIRA [Suspect]
     Route: 058
     Dates: end: 20090731
  12. SODIUM BICARBONATE [Concomitant]
     Indication: OSTEOPOROSIS
     Dates: start: 20110629
  13. LOPERAMIDE [Concomitant]
     Indication: DIARRHOEA
     Dates: start: 20080804

REACTIONS (1)
  - CROHN'S DISEASE [None]
